FAERS Safety Report 5140132-6 (Version None)
Quarter: 2006Q4

REPORT INFORMATION
  Report Type: 
  Country: None (occurrence: None)
  Receive Date: 20061025
  Receipt Date: 20061012
  Transmission Date: 20070319
  Serious: Yes (Death)
  Sender: FDA-Public Use
  Company Number: 2006-251

PATIENT
  Age: 43 Year
  Sex: Male

DRUGS (8)
  1. CARBOPLATIN [Suspect]
     Indication: LYMPHOMA
     Dosage: 400MG/ME2 I.V.
     Route: 042
  2. CYCLOPHOSPHAMIDE [Suspect]
     Indication: LYMPHOMA
     Dosage: 50MG/KG I.V.
     Route: 042
  3. RITUXIMAB [Concomitant]
  4. RANIMUSTINE [Concomitant]
  5. ETOPOSIDE [Concomitant]
  6. DOXORUBICIN HCL [Concomitant]
  7. VINCRISTINE [Concomitant]
  8. PREDNISOLONE [Concomitant]

REACTIONS (15)
  - ANXIETY [None]
  - CARDIAC FAILURE [None]
  - CARDIAC TAMPONADE [None]
  - DELUSION [None]
  - DIALYSIS [None]
  - DIFFUSE LARGE B-CELL LYMPHOMA [None]
  - DISORIENTATION [None]
  - GASTROINTESTINAL HAEMORRHAGE [None]
  - HALLUCINATION [None]
  - METASTASES TO CENTRAL NERVOUS SYSTEM [None]
  - METASTASES TO SKIN [None]
  - PERICARDIAL HAEMORRHAGE [None]
  - RENAL FAILURE [None]
  - SPLENIC LESION [None]
  - STEM CELL TRANSPLANT [None]
